FAERS Safety Report 8794891 (Version 2)
Quarter: 2013Q2

REPORT INFORMATION
  Report Type: Spontaneous
  Country: US (occurrence: US)
  Receive Date: 20120918
  Receipt Date: 20130620
  Transmission Date: 20140414
  Serious: Yes (Other)
  Sender: FDA-Public Use
  Company Number: US-ROCHE-1014644

PATIENT
  Age: 15 Year
  Sex: Male

DRUGS (3)
  1. ACCUTANE [Suspect]
     Indication: PRODUCT USED FOR UNKNOWN INDICATION
     Route: 048
     Dates: start: 19980304
  2. ACCUTANE [Suspect]
     Dosage: 40 MG IN MORNING AND 20 MG IN EVENING
     Route: 048
     Dates: start: 20041223, end: 20050101
  3. ACCUTANE [Suspect]
     Route: 048
     Dates: start: 20050324

REACTIONS (3)
  - Inflammatory bowel disease [Unknown]
  - Lip dry [Unknown]
  - Jaw fracture [Unknown]
